FAERS Safety Report 18898795 (Version 1)
Quarter: 2021Q1

REPORT INFORMATION
  Report Type: Spontaneous
  Country: US (occurrence: US)
  Receive Date: 20210212
  Receipt Date: 20210212
  Transmission Date: 20210420
  Serious: No
  Sender: FDA-Public Use
  Company Number: None

PATIENT
  Age: 64 Year
  Sex: Female
  Weight: 83.25 kg

DRUGS (4)
  1. EYE DROPS [Concomitant]
     Active Substance: UNSPECIFIED INGREDIENT
  2. LYRICA [Concomitant]
     Active Substance: PREGABALIN
  3. VARIOUS OTC VITAMINS [Concomitant]
  4. MANUKAGUARD HONEY NATURAL NASAL SPRAY [Suspect]
     Active Substance: HERBALS\HONEY
     Indication: NASAL CONGESTION
     Dosage: ?          QUANTITY:30 SPRAY(S);?
     Route: 055
     Dates: start: 20201101, end: 20201201

REACTIONS (3)
  - Drug ineffective [None]
  - Upper respiratory tract infection [None]
  - Product container issue [None]

NARRATIVE: CASE EVENT DATE: 20201101
